FAERS Safety Report 5671911-4 (Version None)
Quarter: 2008Q1

REPORT INFORMATION
  Report Type: 
  Country: None (occurrence: None)
  Receive Date: 20080319
  Receipt Date: 20080313
  Transmission Date: 20080703
  Serious: Yes (Death, Other)
  Sender: FDA-Public Use
  Company Number: FR-RANBAXY-2008RR-13642

PATIENT

DRUGS (1)
  1. MINOCYCLINE RPG 50MG COMPRIME PELLICULE [Suspect]
     Indication: ACNE
     Dosage: 2.4 G, UNK

REACTIONS (1)
  - DRUG RASH WITH EOSINOPHILIA AND SYSTEMIC SYMPTOMS [None]
